FAERS Safety Report 16812005 (Version 1)
Quarter: 2019Q3

REPORT INFORMATION
  Report Type: Spontaneous
  Country: IN (occurrence: IN)
  Receive Date: 20190916
  Receipt Date: 20190916
  Transmission Date: 20191005
  Serious: Yes (Death)
  Sender: FDA-Public Use
  Company Number: IN-AMNEAL PHARMACEUTICALS-2019-AMRX-01880

PATIENT

DRUGS (4)
  1. CYTARABINE. [Suspect]
     Active Substance: CYTARABINE
     Indication: LEUKAEMIA RECURRENT
     Dosage: UNK
     Route: 065
  2. ETOPOSIDE. [Suspect]
     Active Substance: ETOPOSIDE
     Indication: LEUKAEMIA RECURRENT
     Dosage: UNK
     Route: 065
  3. CLOFARABINE. [Suspect]
     Active Substance: CLOFARABINE
     Indication: LEUKAEMIA RECURRENT
     Dosage: UNK
     Route: 065
  4. CYCLOPHOSPHAMIDE. [Suspect]
     Active Substance: CYCLOPHOSPHAMIDE
     Indication: LEUKAEMIA RECURRENT
     Dosage: UNK
     Route: 065

REACTIONS (2)
  - Venoocclusive disease [Fatal]
  - Sepsis [Fatal]
